FAERS Safety Report 14204091 (Version 1)
Quarter: 2017Q4

REPORT INFORMATION
  Report Type: Spontaneous
  Country: US (occurrence: US)
  Receive Date: 20171117
  Receipt Date: 20171117
  Transmission Date: 20180321
  Serious: No
  Sender: FDA-Public Use
  Company Number: None

PATIENT
  Sex: Male
  Weight: 77.4 kg

DRUGS (10)
  1. C [Concomitant]
  2. Q VAR 80 INHALER [Concomitant]
  3. IC MOXIFILOXACIN HCL 400 MG TABLET [Suspect]
     Active Substance: MOXIFLOXACIN
     Indication: LUNG INFECTION
     Dosage: ?          QUANTITY:7 TABLET(S);?
     Route: 048
     Dates: start: 20171022, end: 20171026
  4. METHOCARBAMOL. [Concomitant]
     Active Substance: METHOCARBAMOL
  5. PREDNISONE. [Concomitant]
     Active Substance: PREDNISONE
  6. MEN^S PLUS 50 MULTIPLE VITAMINS [Concomitant]
  7. D [Concomitant]
  8. FLONASE [Concomitant]
     Active Substance: FLUTICASONE PROPIONATE
  9. ALBUTEROL SULFATE INHALER [Concomitant]
  10. FISH OIL [Concomitant]
     Active Substance: FISH OIL

REACTIONS (12)
  - Affective disorder [None]
  - Anxiety [None]
  - Agitation [None]
  - Paraesthesia [None]
  - Pain in extremity [None]
  - Disturbance in attention [None]
  - Tendon disorder [None]
  - Swelling [None]
  - Nasopharyngitis [None]
  - Burning sensation [None]
  - Muscle disorder [None]
  - Mental disorder [None]

NARRATIVE: CASE EVENT DATE: 20171114
